FAERS Safety Report 11637151 (Version 1)
Quarter: 2015Q4

REPORT INFORMATION
  Report Type: Spontaneous
  Country: US (occurrence: None)
  Receive Date: 20151015
  Receipt Date: 20151015
  Transmission Date: 20160304
  Serious: Yes (Hospitalization, Disabling, Other)
  Sender: FDA-Public Use
  Company Number: None

PATIENT
  Age: 69 Year
  Sex: Female
  Weight: 69.85 kg

DRUGS (4)
  1. 81MG ASPIRIN [Concomitant]
  2. MULTIVITAMIN [Concomitant]
     Active Substance: VITAMINS
  3. CIPROFLOXACIN 500MG BAYER [Suspect]
     Active Substance: CIPROFLOXACIN
     Indication: URINARY TRACT INFECTION
     Dosage: 1 PILL
     Route: 048
     Dates: start: 20150918, end: 20150928
  4. LIPITOR [Concomitant]
     Active Substance: ATORVASTATIN CALCIUM

REACTIONS (16)
  - Dyspnoea [None]
  - Nasal congestion [None]
  - Fatigue [None]
  - Skin irritation [None]
  - Rash generalised [None]
  - Pruritus [None]
  - Arthralgia [None]
  - Headache [None]
  - Vomiting [None]
  - Myalgia [None]
  - Eye irritation [None]
  - Asthenia [None]
  - Tachycardia [None]
  - Nausea [None]
  - Chest discomfort [None]
  - Gait disturbance [None]

NARRATIVE: CASE EVENT DATE: 20150926
